FAERS Safety Report 7635058-X (Version None)
Quarter: 2011Q3

REPORT INFORMATION
  Report Type: 
  Country: None (occurrence: None)
  Receive Date: 20110726
  Receipt Date: 20110714
  Transmission Date: 20111222
  Serious: Yes (Hospitalization, Other)
  Sender: FDA-Public Use
  Company Number: US-JNJFOC-20110706698

PATIENT
  Age: 61 Year
  Sex: Female
  Weight: 43 kg

DRUGS (12)
  1. RIFAMPICIN [Suspect]
     Indication: TUBERCULOSIS
     Route: 065
     Dates: start: 20110120, end: 20110322
  2. STREPTOMYCIN [Suspect]
     Route: 030
     Dates: start: 20110411, end: 20110412
  3. PYRAZINAMIDE [Suspect]
     Indication: TUBERCULOSIS
     Route: 065
     Dates: start: 20110120, end: 20110322
  4. CYCLOSERINE [Concomitant]
     Indication: TUBERCULOSIS
     Route: 065
     Dates: start: 20110411, end: 20110412
  5. STREPTOMYCIN [Suspect]
     Indication: TUBERCULOSIS
     Route: 065
     Dates: start: 20110120, end: 20110322
  6. LEVOFLOXACIN [Suspect]
     Route: 042
     Dates: start: 20110120, end: 20110322
  7. ETHAMBUTOL HYDROCHLORIDE [Suspect]
     Indication: TUBERCULOSIS
     Route: 048
     Dates: start: 20110120, end: 20110322
  8. ISONIAZID [Suspect]
     Indication: TUBERCULOSIS
     Route: 065
     Dates: start: 20110120, end: 20110322
  9. PYRIDOXINE HCL [Suspect]
     Indication: TUBERCULOSIS
     Route: 065
     Dates: start: 20110120, end: 20110322
  10. ETHAMBUTOL HYDROCHLORIDE [Suspect]
     Route: 048
     Dates: start: 20110411, end: 20110412
  11. AMIKACIN [Suspect]
     Indication: TUBERCULOSIS
     Route: 042
     Dates: start: 20110120, end: 20110322
  12. LEVOFLOXACIN [Suspect]
     Indication: TUBERCULOSIS
     Route: 042
     Dates: start: 20110411, end: 20110412

REACTIONS (1)
  - DRUG RASH WITH EOSINOPHILIA AND SYSTEMIC SYMPTOMS [None]
